FAERS Safety Report 5814882-X (Version None)
Quarter: 2008Q3

REPORT INFORMATION
  Report Type: 
  Country: None (occurrence: None)
  Receive Date: 20080718
  Receipt Date: 20080718
  Transmission Date: 20090109
  Serious: Yes (Death)
  Sender: FDA-Public Use
  Company Number: GB-EISAI MEDICAL RESEARCH-E2020-03106-SPO-GB

PATIENT
  Age: 88 Year
  Sex: Female

DRUGS (7)
  1. ARICEPT [Suspect]
     Indication: DEMENTIA
     Dosage: UNKNOWN
     Route: 048
     Dates: start: 20080606
  2. ADCAL-D3 [Concomitant]
     Indication: OSTEOPOROSIS
     Dates: start: 20071119
  3. ALENDRONIC ACID [Concomitant]
     Indication: OSTEOPOROSIS
     Route: 048
     Dates: start: 20070212
  4. LANSOPRAZOLE [Concomitant]
     Indication: GASTROOESOPHAGEAL REFLUX DISEASE
     Route: 048
     Dates: start: 20070514
  5. MACROGOL [Concomitant]
     Indication: CONSTIPATION
     Dosage: PRN
     Dates: start: 20080212
  6. ACETAMINOPHEN [Concomitant]
     Indication: ARTHRALGIA
     Route: 048
     Dates: start: 20070320
  7. PREDNISOLONE [Concomitant]
     Indication: POLYMYALGIA RHEUMATICA
     Route: 048
     Dates: start: 20070809

REACTIONS (1)
  - PULMONARY EMBOLISM [None]
